FAERS Safety Report 19454772 (Version 2)
Quarter: 2021Q3

REPORT INFORMATION
  Report Type: Spontaneous
  Country: AU (occurrence: AU)
  Receive Date: 20210623
  Receipt Date: 20210813
  Transmission Date: 20211014
  Serious: Yes (Death, Hospitalization)
  Sender: FDA-Public Use
  Company Number: AU-MYLANLABS-2021M1037052

PATIENT
  Age: 70 Year
  Sex: Female

DRUGS (2)
  1. IPRATROPIUM [Concomitant]
     Active Substance: IPRATROPIUM
     Dosage: UNK UNK, QID
     Dates: start: 20210614
  2. CLOZARIL [Suspect]
     Active Substance: CLOZAPINE
     Indication: SCHIZOPHRENIA
     Dosage: 250 MILLIGRAM, PM
     Route: 048
     Dates: start: 19940905, end: 20210614

REACTIONS (5)
  - Acute pulmonary oedema [Unknown]
  - Respiratory failure [Fatal]
  - Urinary tract infection [Unknown]
  - Cardiac failure congestive [Unknown]
  - Altered state of consciousness [Unknown]

NARRATIVE: CASE EVENT DATE: 20210614
